FAERS Safety Report 6253548-1 (Version None)
Quarter: 2009Q3

REPORT INFORMATION
  Report Type: 
  Country: None (occurrence: None)
  Receive Date: 20090701
  Receipt Date: 20090624
  Transmission Date: 20100115
  Serious: Yes (Hospitalization, Other)
  Sender: FDA-Public Use
  Company Number: FR-WYE-H09966609

PATIENT
  Sex: Female

DRUGS (13)
  1. CORDARONE [Suspect]
     Indication: ARRHYTHMIA
     Route: 048
     Dates: end: 20090202
  2. COUMADIN [Interacting]
     Indication: PROPHYLAXIS
     Dosage: 2 MG ALTERNATING WITH 1 MG, DAILY
     Route: 048
  3. VALSARTAN [Interacting]
     Indication: ESSENTIAL HYPERTENSION
     Route: 048
     Dates: end: 20090202
  4. HYDROCHLOROTHIAZIDE [Interacting]
     Indication: ESSENTIAL HYPERTENSION
     Route: 048
     Dates: end: 20090202
  5. ALDACTONE [Interacting]
     Indication: HYPERTENSION
     Route: 048
     Dates: end: 20090202
  6. SERETIDE [Concomitant]
     Dosage: DOSE UNKNOWN
     Route: 045
  7. ADANCOR [Interacting]
     Indication: ANGINA PECTORIS
     Route: 048
     Dates: end: 20090202
  8. DISCOTRINE [Interacting]
     Indication: PROPHYLAXIS
     Route: 062
     Dates: end: 20090202
  9. SINGULAIR [Concomitant]
     Dosage: DOSE UNKNOWN
     Route: 048
  10. NEXIUM [Concomitant]
     Dosage: DOSE UNKNOWN
     Route: 065
  11. TEMESTA [Concomitant]
     Dosage: DOSE UNKNOWN
     Route: 048
  12. LASIX [Interacting]
     Indication: HYPERTENSION
     Route: 048
     Dates: end: 20090202
  13. HEMIGOXINE NATIVELLE [Interacting]
     Indication: ARRHYTHMIA
     Route: 048
     Dates: end: 20090202

REACTIONS (8)
  - DEHYDRATION [None]
  - DRUG INTERACTION [None]
  - EXCORIATION [None]
  - FALL [None]
  - GAIT DISTURBANCE [None]
  - MALAISE [None]
  - PAIN [None]
  - TRAUMATIC HAEMATOMA [None]
